FAERS Safety Report 5019812-9 (Version None)
Quarter: 2006Q2

REPORT INFORMATION
  Report Type: 
  Country: None (occurrence: None)
  Receive Date: 20060605
  Receipt Date: 20060605
  Transmission Date: 20061013
  Serious: Yes (Hospitalization)
  Sender: FDA-Public Use
  Company Number: None

PATIENT
  Sex: Male
  Weight: 69.5 kg

DRUGS (3)
  1. FLUOROURACIL [Suspect]
     Indication: NEOPLASM MALIGNANT
     Dosage: 600 MG QD IV
     Route: 042
     Dates: start: 20060521, end: 20060526
  2. HYDREA [Suspect]
     Indication: NEOPLASM MALIGNANT
     Dosage: 500 MG PO BID
     Route: 048
     Dates: start: 20060521, end: 20060526
  3. IRESSA [Suspect]
     Dosage: 500 MG PO QD
     Route: 048
     Dates: start: 20060501

REACTIONS (2)
  - MUCOSAL INFLAMMATION [None]
  - PYREXIA [None]
